FAERS Safety Report 23920921 (Version 1)
Quarter: 2024Q2

REPORT INFORMATION
  Report Type: Spontaneous
  Country: US (occurrence: None)
  Receive Date: 20240530
  Receipt Date: 20240530
  Transmission Date: 20240716
  Serious: Yes (Hospitalization)
  Sender: FDA-Public Use
  Company Number: None

PATIENT
  Sex: Male

DRUGS (2)
  1. BENEFIX [Suspect]
     Active Substance: COAGULATION FACTOR IX RECOMBINANT HUMAN\ISOPROPYL ALCOHOL
     Indication: Factor IX deficiency
     Dosage: 6100IU WEEKLY + PM INTRAVENOUS
     Route: 042
     Dates: start: 202311
  2. BENEFIX [Suspect]
     Active Substance: COAGULATION FACTOR IX RECOMBINANT HUMAN\ISOPROPYL ALCOHOL
     Indication: Factor IX deficiency
     Dosage: 6100IU WEEKLY + PM IV
     Route: 042
     Dates: start: 202311

REACTIONS (3)
  - Haemorrhage [None]
  - Joint microhaemorrhage [None]
  - Joint microhaemorrhage [None]
